FAERS Safety Report 18502602 (Version 1)
Quarter: 2020Q4

REPORT INFORMATION
  Report Type: Spontaneous
  Country: HU (occurrence: HU)
  Receive Date: 20201113
  Receipt Date: 20201113
  Transmission Date: 20210114
  Serious: Yes (Hospitalization, Other)
  Sender: FDA-Public Use
  Company Number: NVSC2020HU297073

PATIENT
  Age: 15 Year
  Sex: Male

DRUGS (5)
  1. VINCRISTIN [Concomitant]
     Active Substance: VINCRISTINE
     Indication: IMMUNE THROMBOCYTOPENIA
     Dosage: UNK
     Route: 065
     Dates: start: 2018
  2. REVOLADE [Suspect]
     Active Substance: ELTROMBOPAG
     Indication: IMMUNE THROMBOCYTOPENIA
     Dosage: 50 MG, QD
     Route: 065
     Dates: start: 201811
  3. REVOLADE [Suspect]
     Active Substance: ELTROMBOPAG
     Dosage: UNK
     Route: 065
     Dates: start: 2019, end: 2019
  4. ROMIPLOSTIM [Concomitant]
     Active Substance: ROMIPLOSTIM
     Indication: IMMUNE THROMBOCYTOPENIA
     Dosage: 10 MICG / KG
     Route: 065
     Dates: start: 2018
  5. REVOLADE [Suspect]
     Active Substance: ELTROMBOPAG
     Dosage: 75 MG, QD
     Route: 065
     Dates: end: 2019

REACTIONS (9)
  - Tonsillitis [Recovered/Resolved]
  - Lymphadenopathy [Recovered/Resolved]
  - Viral infection [Unknown]
  - Platelet count increased [Recovered/Resolved]
  - Rash [Recovered/Resolved]
  - Thrombocytopenia [Recovered/Resolved]
  - Pyrexia [Recovered/Resolved]
  - Conjunctivitis [Recovered/Resolved]
  - Kawasaki^s disease [Unknown]

NARRATIVE: CASE EVENT DATE: 2019
